FAERS Safety Report 8013872-9 (Version None)
Quarter: 2011Q4

REPORT INFORMATION
  Report Type: 
  Country: None (occurrence: None)
  Receive Date: 20111229
  Receipt Date: 20111226
  Transmission Date: 20120403
  Serious: Yes (Hospitalization, Other)
  Sender: FDA-Public Use
  Company Number: FR-PFIZER INC-2010048754

PATIENT
  Age: 79 Year
  Sex: Female
  Weight: 65 kg

DRUGS (4)
  1. OFLOXACIN [Concomitant]
     Dosage: 200 MG, 2X/DAY
     Route: 042
     Dates: start: 20100322, end: 20100328
  2. ZYVOX [Suspect]
     Indication: PERIRECTAL ABSCESS
     Dosage: 600 MG, 2X/DAY
     Route: 042
     Dates: start: 20100324, end: 20100330
  3. VANCOMYCIN [Concomitant]
     Indication: PERIRECTAL ABSCESS
     Dosage: 2400 MG, 1X/DAY
     Route: 042
     Dates: start: 20100322, end: 20100324
  4. METRONIDAZOLE [Suspect]
     Dosage: 500 MG, 3X/DAY
     Route: 042
     Dates: start: 20100322, end: 20100410

REACTIONS (3)
  - SEROTONIN SYNDROME [None]
  - MYOCLONUS [None]
  - ENCEPHALOPATHY [None]
